FAERS Safety Report 9645104 (Version 3)
Quarter: 2014Q1

REPORT INFORMATION
  Report Type: Report from Study
  Country: BE (occurrence: BE)
  Receive Date: 20131025
  Receipt Date: 20140204
  Transmission Date: 20141002
  Serious: Yes (Hospitalization)
  Sender: FDA-Public Use
  Company Number: PHHO2013BE013513

PATIENT
  Sex: 0

DRUGS (12)
  1. ACZ885 [Suspect]
     Indication: CARDIOVASCULAR EVENT PROPHYLAXIS
     Dosage: 300 MG, UNK
     Route: 058
     Dates: start: 20121023, end: 20121120
  2. ASAFLOW [Suspect]
     Indication: MYOCARDIAL INFARCTION
     Dosage: 80 MG, QD
     Route: 048
     Dates: start: 20101126
  3. PLAVIX [Suspect]
     Indication: THROMBOSIS PROPHYLAXIS
     Dosage: 75 MG, QD
     Route: 048
     Dates: start: 20101126
  4. ZOLPIDEM [Concomitant]
     Indication: FATIGUE
     Dosage: 10 MG, QD
     Route: 048
     Dates: start: 20101128
  5. DOLZAM [Concomitant]
     Indication: ARTHRALGIA
     Dosage: 200 MG, QD
     Route: 048
     Dates: start: 20120325
  6. EPSIPAM [Concomitant]
     Indication: FATIGUE
     Dosage: 50 MG, QD
     Route: 048
     Dates: start: 20101121
  7. ZOCOR [Concomitant]
     Indication: HYPERCHOLESTEROLAEMIA
     Dosage: 40 MG, QD
     Route: 048
     Dates: start: 20101126
  8. TRAZODONE [Concomitant]
     Indication: PROPHYLAXIS
     Dosage: 50 MG, QD
     Route: 048
     Dates: start: 20120105
  9. PANTOMED//PANTOPRAZOLE SODIUM SESQUIHYDRATE [Concomitant]
     Indication: GASTROOESOPHAGEAL REFLUX DISEASE
     Dosage: 40 MG, QD
     Route: 048
     Dates: start: 20120522
  10. FORTEX [Concomitant]
     Indication: CONSTIPATION
     Dosage: 10 G, PRN
     Route: 048
     Dates: start: 20121113
  11. CERAZETTE [Concomitant]
     Indication: VAGINAL HAEMORRHAGE
     Dosage: 0.075 MG, QD
     Route: 048
     Dates: start: 20121113
  12. DAFALGAN [Concomitant]

REACTIONS (2)
  - Vaginal haemorrhage [Recovered/Resolved]
  - Depression [Recovered/Resolved]
